FAERS Safety Report 5228144-5 (Version None)
Quarter: 2007Q1

REPORT INFORMATION
  Report Type: 
  Country: None (occurrence: None)
  Receive Date: 20070130
  Receipt Date: 20070119
  Transmission Date: 20070707
  Serious: Yes (Other)
  Sender: FDA-Public Use
  Company Number: 2007304147

PATIENT
  Age: 16 Year
  Sex: Male
  Weight: 54.4316 kg

DRUGS (2)
  1. PURELL ORIGINAL (ETHYL ALCOHOL) [Suspect]
     Indication: POISONING
     Dosage: 2 FLUID OUNCES ONCE, ORAL
     Route: 048
     Dates: start: 20070118, end: 20070118
  2. DRUG, UNSPECIFIED (DRUG, UNSPECIFIED) [Concomitant]

REACTIONS (3)
  - ALCOHOL POISONING [None]
  - INCORRECT ROUTE OF DRUG ADMINISTRATION [None]
  - INTENTIONAL DRUG MISUSE [None]
